FAERS Safety Report 6118076-2 (Version None)
Quarter: 2009Q1

REPORT INFORMATION
  Report Type: 
  Country: None (occurrence: None)
  Receive Date: 20090314
  Receipt Date: 20090208
  Transmission Date: 20090719
  Serious: No
  Sender: FDA-Public Use
  Company Number: US-ABBOTT-09P-163-0502536-00

PATIENT
  Sex: Female
  Weight: 120.31 kg

DRUGS (4)
  1. HUMIRA [Suspect]
     Indication: PSORIATIC ARTHROPATHY
     Dates: start: 20081215
  2. HUMIRA [Suspect]
     Indication: PSORIASIS
  3. TOPIMAX [Concomitant]
     Indication: MIGRAINE
  4. TOPIMAX [Concomitant]
     Indication: CONVULSION

REACTIONS (7)
  - COUGH [None]
  - DYSPHASIA [None]
  - DYSPNOEA [None]
  - HEADACHE [None]
  - NASOPHARYNGITIS [None]
  - PAIN [None]
  - PULMONARY CONGESTION [None]
